FAERS Safety Report 13772765 (Version 1)
Quarter: 2017Q3

REPORT INFORMATION
  Report Type: Spontaneous
  Country: US (occurrence: US)
  Receive Date: 20170720
  Receipt Date: 20170720
  Transmission Date: 20171127
  Serious: No
  Sender: FDA-Public Use
  Company Number: US-PERRIGO-17US000990

PATIENT
  Sex: Female

DRUGS (1)
  1. MICONAZOLE 1 [Suspect]
     Active Substance: MICONAZOLE NITRATE
     Indication: PRODUCT USED FOR UNKNOWN INDICATION
     Dosage: 1200 MG, SINGLE
     Route: 067
     Dates: start: 201701, end: 201701

REACTIONS (3)
  - Vulvovaginal pruritus [Unknown]
  - Vulvovaginal pain [Unknown]
  - Vulvovaginal burning sensation [Unknown]

NARRATIVE: CASE EVENT DATE: 201701
